FAERS Safety Report 7766056-3 (Version None)
Quarter: 2011Q3

REPORT INFORMATION
  Report Type: 
  Country: None (occurrence: None)
  Receive Date: 20110921
  Receipt Date: 20110912
  Transmission Date: 20111222
  Serious: Yes (Other)
  Sender: FDA-Public Use
  Company Number: US-ASTRAZENECA-2011SE45550

PATIENT
  Age: 55 Year
  Sex: Male

DRUGS (2)
  1. SEROQUEL XR [Suspect]
     Indication: SLEEP DISORDER
     Dosage: 200 MG 1 TABLET PM
     Route: 048
  2. ADVAIR DISKUS 100/50 [Concomitant]

REACTIONS (4)
  - GAIT DISTURBANCE [None]
  - DYSPNOEA [None]
  - OFF LABEL USE [None]
  - MENTAL DISORDER [None]
